FAERS Safety Report 9232268 (Version 1)
Quarter: 2013Q2

REPORT INFORMATION
  Report Type: Spontaneous
  Country: US (occurrence: US)
  Receive Date: 20130415
  Receipt Date: 20130415
  Transmission Date: 20140414
  Serious: No
  Sender: FDA-Public Use
  Company Number: US-009507513-2012SP032493

PATIENT
  Sex: Male

DRUGS (4)
  1. LOTRIMIN AF JOCK ITCH SPRAY POWDER [Suspect]
     Indication: PRURITUS
     Dosage: UNK UNK, UNKNOWN
     Route: 061
  2. LOTRIMIN AF JOCK ITCH SPRAY POWDER [Suspect]
     Indication: BURNING SENSATION
  3. LOTRIMIN AF JOCK ITCH SPRAY POWDER [Suspect]
     Indication: SKIN EXFOLIATION
  4. LOTRIMIN AF JOCK ITCH SPRAY POWDER [Suspect]
     Indication: SKIN IRRITATION

REACTIONS (1)
  - No therapeutic response [Recovered/Resolved]
